FAERS Safety Report 8339347-5 (Version None)
Quarter: 2012Q2

REPORT INFORMATION
  Report Type: 
  Country: None (occurrence: None)
  Receive Date: 20120507
  Receipt Date: 20120427
  Transmission Date: 20120825
  Serious: Yes (Other)
  Sender: FDA-Public Use
  Company Number: US-JNJFOC-20120503989

PATIENT
  Sex: Female
  Weight: 53.07 kg

DRUGS (2)
  1. RISPERDAL [Suspect]
     Indication: BIPOLAR DISORDER
     Route: 048
     Dates: start: 19930101, end: 20120401
  2. TRILEPTAL [Suspect]
     Indication: SCHIZOPHRENIA
     Route: 048
     Dates: start: 20070101

REACTIONS (6)
  - INSOMNIA [None]
  - HALLUCINATION, AUDITORY [None]
  - NEURALGIA [None]
  - TREMOR [None]
  - INTERVERTEBRAL DISC PROTRUSION [None]
  - FEELING ABNORMAL [None]
